FAERS Safety Report 23515803 (Version 1)
Quarter: 2024Q1

REPORT INFORMATION
  Report Type: Spontaneous
  Country: BH (occurrence: BH)
  Receive Date: 20240213
  Receipt Date: 20240213
  Transmission Date: 20240409
  Serious: Yes (Death, Other)
  Sender: FDA-Public Use
  Company Number: BH-JNJFOC-20240211696

PATIENT
  Age: 78 Year
  Sex: Male

DRUGS (2)
  1. RISPERDAL [Suspect]
     Active Substance: RISPERIDONE
     Indication: Psychotic disorder
     Route: 065
  2. PROCYCLIDINE [Suspect]
     Active Substance: PROCYCLIDINE
     Indication: Psychotic disorder
     Route: 065

REACTIONS (5)
  - Intestinal pseudo-obstruction [Fatal]
  - Rhabdomyolysis [Unknown]
  - Parkinsonism [Unknown]
  - Leukocytosis [Unknown]
  - Hypomagnesaemia [Unknown]
